FAERS Safety Report 5911082-X (Version None)
Quarter: 2008Q4

REPORT INFORMATION
  Report Type: 
  Country: None (occurrence: None)
  Receive Date: 20081007
  Receipt Date: 20080212
  Transmission Date: 20090506
  Serious: No
  Sender: FDA-Public Use
  Company Number: US-BRISTOL-MYERS SQUIBB COMPANY-13950035

PATIENT
  Age: 63 Year
  Sex: Female
  Weight: 113 kg

DRUGS (3)
  1. AVAPRO [Suspect]
     Indication: HYPERTENSION
     Route: 048
  2. AVALIDE [Suspect]
  3. CLONIDINE [Concomitant]
     Route: 048

REACTIONS (5)
  - BLOOD GLUCOSE INCREASED [None]
  - HEADACHE [None]
  - HYPERTENSION [None]
  - PAIN IN EXTREMITY [None]
  - VISION BLURRED [None]
